FAERS Safety Report 17358207 (Version 1)
Quarter: 2020Q1

REPORT INFORMATION
  Report Type: Spontaneous
  Country: TH (occurrence: TH)
  Receive Date: 20200131
  Receipt Date: 20200131
  Transmission Date: 20200409
  Serious: Yes (Other)
  Sender: FDA-Public Use
  Company Number: TH-ROCHE-2536991

PATIENT
  Age: 64 Year
  Sex: Male

DRUGS (11)
  1. CYTARABINE. [Suspect]
     Active Substance: CYTARABINE
     Indication: DIFFUSE LARGE B-CELL LYMPHOMA REFRACTORY
     Dosage: PART OF ESHAP
     Route: 065
  2. VINCRISTINE [Suspect]
     Active Substance: VINCRISTINE
     Indication: DIFFUSE LARGE B-CELL LYMPHOMA
     Dosage: PART OF R-CHOP
     Route: 065
     Dates: start: 201802, end: 201809
  3. RITUXIMAB. [Suspect]
     Active Substance: RITUXIMAB
     Indication: DIFFUSE LARGE B-CELL LYMPHOMA
     Dosage: PART OF R-CHOP
     Route: 065
     Dates: start: 201802, end: 201809
  4. IFOSFAMIDE. [Suspect]
     Active Substance: IFOSFAMIDE
     Indication: DIFFUSE LARGE B-CELL LYMPHOMA REFRACTORY
     Dosage: PART OF ICE
     Route: 065
  5. CARBOPLATIN. [Suspect]
     Active Substance: CARBOPLATIN
     Indication: DIFFUSE LARGE B-CELL LYMPHOMA REFRACTORY
     Dosage: PART OF ICE
     Route: 065
  6. ETOPOSIDE. [Suspect]
     Active Substance: ETOPOSIDE
     Indication: DIFFUSE LARGE B-CELL LYMPHOMA REFRACTORY
     Dosage: PART OF ICE, PART OF ESHAP
     Route: 065
  7. PREDNISOLONE. [Suspect]
     Active Substance: PREDNISOLONE
     Indication: DIFFUSE LARGE B-CELL LYMPHOMA
     Dosage: PART OF R-CHOP
     Route: 065
     Dates: start: 201802, end: 201809
  8. METHYLPREDNISOLONE. [Suspect]
     Active Substance: METHYLPREDNISOLONE
     Indication: DIFFUSE LARGE B-CELL LYMPHOMA REFRACTORY
     Dosage: PART OF ESHAP
     Route: 065
  9. CYCLOPHOSPHAMIDE. [Suspect]
     Active Substance: CYCLOPHOSPHAMIDE
     Indication: DIFFUSE LARGE B-CELL LYMPHOMA
     Dosage: PART OF R-CHOP
     Route: 065
     Dates: start: 201802, end: 201809
  10. DOXORUBICIN [Suspect]
     Active Substance: DOXORUBICIN
     Indication: DIFFUSE LARGE B-CELL LYMPHOMA
     Dosage: PART OF R-CHOP
     Route: 065
     Dates: start: 201802, end: 201809
  11. CISPLATIN. [Suspect]
     Active Substance: CISPLATIN
     Indication: DIFFUSE LARGE B-CELL LYMPHOMA REFRACTORY
     Dosage: PART OF ESHAP
     Route: 045

REACTIONS (2)
  - Therapy partial responder [Unknown]
  - Abdominal mass [Unknown]

NARRATIVE: CASE EVENT DATE: 201806
